FAERS Safety Report 24286422 (Version 1)
Quarter: 2024Q3

REPORT INFORMATION
  Report Type: Spontaneous
  Country: US (occurrence: US)
  Receive Date: 20240905
  Receipt Date: 20240905
  Transmission Date: 20241017
  Serious: No
  Sender: MERCK
  Company Number: US-009507513-2408USA005401

PATIENT
  Age: 89 Year
  Sex: Male

DRUGS (9)
  1. KEYTRUDA [Suspect]
     Active Substance: PEMBROLIZUMAB
     Indication: Metastatic malignant melanoma
     Dosage: EVERY 6 WEEKS
     Route: 042
     Dates: start: 202307, end: 20240809
  2. HYDROCORTISONE [Concomitant]
     Active Substance: HYDROCORTISONE\HYDROCORTISONE ACETATE
  3. ELIQUIS [Concomitant]
     Active Substance: APIXABAN
  4. JARDIANCE [Concomitant]
     Active Substance: EMPAGLIFLOZIN
  5. HYDROXYZINE [Concomitant]
     Active Substance: HYDROXYZINE HYDROCHLORIDE
  6. METFORMIN [Concomitant]
     Active Substance: METFORMIN HYDROCHLORIDE
  7. MAGNESIUM [Concomitant]
     Active Substance: MAGNESIUM
  8. POTASSIUM [Concomitant]
     Active Substance: POTASSIUM
  9. LYRICA [Concomitant]
     Active Substance: PREGABALIN

REACTIONS (5)
  - Diarrhoea [Unknown]
  - Ageusia [Unknown]
  - Weight decreased [Unknown]
  - Feeling cold [Unknown]
  - Aphonia [Unknown]

NARRATIVE: CASE EVENT DATE: 20240101
